FAERS Safety Report 19170862 (Version 1)
Quarter: 2021Q2

REPORT INFORMATION
  Report Type: Spontaneous
  Country: US (occurrence: US)
  Receive Date: 20210423
  Receipt Date: 20210423
  Transmission Date: 20210717
  Serious: No
  Sender: FDA-Public Use
  Company Number: US-ELI_LILLY_AND_COMPANY-US202103013654

PATIENT
  Sex: Female

DRUGS (2)
  1. OLUMIANT [Suspect]
     Active Substance: BARICITINIB
     Indication: RHEUMATOID ARTHRITIS
     Dosage: UNK UNK, UNKNOWN
     Route: 048
     Dates: start: 202009
  2. OLUMIANT [Suspect]
     Active Substance: BARICITINIB
     Dosage: 1 MG, DAILY
     Route: 048

REACTIONS (2)
  - Off label use [Unknown]
  - Urinary tract infection [Unknown]
